FAERS Safety Report 5649108-3 (Version None)
Quarter: 2008Q1

REPORT INFORMATION
  Report Type: 
  Country: None (occurrence: None)
  Receive Date: 20080304
  Receipt Date: 20080228
  Transmission Date: 20080703
  Serious: Yes (Death, Life-Threatening)
  Sender: FDA-Public Use
  Company Number: DE-AVENTIS-200810578DE

PATIENT
  Age: 59 Year
  Sex: Male

DRUGS (54)
  1. LASIX [Suspect]
  2. CLEXANE [Suspect]
     Route: 058
  3. CLEXANE [Suspect]
     Route: 058
  4. TAVEGIL                            /00137201/ [Suspect]
     Dosage: DOSE: 1-0-1, 1-1-1-1, 0-1-1
     Route: 048
  5. BELOC                              /00376903/ [Suspect]
     Dosage: DOSE: 1 TABLET
     Route: 048
  6. MARCUMAR [Suspect]
     Route: 048
  7. CIPROBAY                           /00697202/ [Suspect]
     Dosage: DOSE: 1-0-0, 1/2-0-1/2
     Route: 048
  8. DECORTIN [Suspect]
     Dosage: DOSE: 1-0-1/2
     Route: 048
  9. DECORTIN [Suspect]
     Dosage: DOSE: 1-0-1/2
     Route: 048
  10. CLONT                              /00012501/ [Suspect]
     Route: 048
  11. NEXIUM [Suspect]
     Route: 048
  12. ALDACTONE [Concomitant]
     Route: 048
  13. VANCOMYCIN [Concomitant]
  14. FENISTIL [Concomitant]
     Route: 003
  15. NATRIUMCHLORID [Concomitant]
  16. NATRIUMCHLORID [Concomitant]
  17. NATRIUMCHLORID [Concomitant]
  18. TORSEMIDE [Concomitant]
     Dosage: DOSE: 1-1-0, 1-1/2-0
     Route: 048
  19. DECORTIN H [Concomitant]
     Dosage: DOSE: 1/2-0-0, 3-0-1, 5/2-0-3/2, 1-0-1/2
     Route: 048
  20. DECORTIN H [Concomitant]
     Dosage: DOSE: 3-0-1, 3-0-0
     Route: 048
  21. ROCEPHIN                           /00672201/ [Concomitant]
  22. PARACODIN TROPFEN [Concomitant]
     Route: 048
  23. LORAZEPAM [Concomitant]
     Dosage: DOSE: 0-0-1,1-1/2-0
  24. BEPANTHEN                          /00178901/ [Concomitant]
     Dosage: DOSE: NOT REPORTED
     Route: 003
  25. PANTOZOL                           /01263202/ [Concomitant]
     Dosage: DOSE: NOT REPORTED
     Route: 048
  26. TAVEGIL                            /00137201/ [Concomitant]
     Dosage: DOSE: NOT REPORTED
     Route: 003
  27. BEN-U-RON [Concomitant]
     Route: 054
  28. IMODIUM [Concomitant]
     Route: 048
  29. GLUCOSE [Concomitant]
  30. GLUCOSE [Concomitant]
  31. CALCIUM [Concomitant]
     Dosage: DOSE: 2 AMPOULES
  32. NABIC [Concomitant]
  33. ALBUMINA HUMANA [Concomitant]
  34. RED BLOOD CELLS [Concomitant]
     Dosage: DOSE: 2 PACKS
  35. KONAKION [Concomitant]
     Dosage: DOSE: 1 AMPOULE
  36. RINGERS                            /00047801/ [Concomitant]
  37. RINGERS                            /00047801/ [Concomitant]
  38. K CL TAB [Concomitant]
  39. KALIUM CHLORATUM STREULI [Concomitant]
     Dosage: DOSE: 0-0-1, 1-1-1
     Route: 048
  40. PASPERTIN                          /00041902/ [Concomitant]
     Route: 048
  41. FUROSEMIDE [Concomitant]
     Dosage: DOSE: 1-1/2-0
     Route: 048
  42. MUCOSOLVAN [Concomitant]
     Dosage: DOSE: 3X1 AMPOULE
  43. TAVEGIL                            /00137201/ [Concomitant]
     Dosage: DOSE: 3X1 AMPOULE
  44. CORDAREX                           /00133102/ [Concomitant]
     Route: 048
  45. CORDAREX                           /00133102/ [Concomitant]
     Dosage: DOSE: 6 AMPOULES
  46. MERONEM                            /01250501/ [Concomitant]
     Dosage: DOSE: 0-0-1, 1-0-1
  47. NOREPINEPHRINE BITARTRATE [Concomitant]
     Dosage: DOSE: 10 MG NACH RUECKSPRACHE
  48. BELOC                              /00376902/ [Concomitant]
  49. DECORTIN [Concomitant]
     Dosage: DOSE: 1-0-1/2
  50. BENZODIAZEPINE DERIVATIVES [Concomitant]
  51. NEXIUM [Concomitant]
     Dosage: DOSE: 1-0-1, 0-0-1
  52. FENTANYL [Concomitant]
  53. FRESUBIN [Concomitant]
     Dosage: DOSE: 500 - 1000
  54. NOVODIGAL                          /00017701/ [Concomitant]
     Route: 048

REACTIONS (2)
  - STEVENS-JOHNSON SYNDROME [None]
  - TOXIC EPIDERMAL NECROLYSIS [None]
